FAERS Safety Report 25518565 (Version 2)
Quarter: 2025Q3

REPORT INFORMATION
  Report Type: Report from Study
  Country: US (occurrence: US)
  Receive Date: 20250704
  Receipt Date: 20250810
  Transmission Date: 20251020
  Serious: Yes (Other)
  Sender: ALEXION PHARMACEUTICALS
  Company Number: US-AstraZeneca-CH-00888361A

PATIENT
  Age: 80 Year
  Sex: Male
  Weight: 66.5 kg

DRUGS (1)
  1. ACALABRUTINIB [Suspect]
     Active Substance: ACALABRUTINIB
     Indication: Chronic lymphocytic leukaemia
     Dosage: 100 MILLIGRAM, BID
     Dates: start: 20250422, end: 20250605

REACTIONS (15)
  - Hypoxia [Unknown]
  - Drug reaction with eosinophilia and systemic symptoms [Unknown]
  - Rash [Unknown]
  - Swelling [Recovered/Resolved]
  - Dyspnoea [Unknown]
  - Skin exfoliation [Unknown]
  - Erythema [Unknown]
  - Fluid retention [Unknown]
  - Oedema [Unknown]
  - Weight increased [Unknown]
  - Tremor [Unknown]
  - Nasal congestion [Unknown]
  - Tachycardia [Unknown]
  - Toxicity to various agents [Unknown]
  - Dry skin [Unknown]

NARRATIVE: CASE EVENT DATE: 20250524
